FAERS Safety Report 9652875 (Version 3)
Quarter: 2013Q4

REPORT INFORMATION
  Report Type: Report from Study
  Country: CA (occurrence: CA)
  Receive Date: 20131029
  Receipt Date: 20131120
  Transmission Date: 20140711
  Serious: Yes (Hospitalization)
  Sender: FDA-Public Use
  Company Number: CA-ABBVIE-13P-028-1161761-00

PATIENT
  Sex: Male
  Weight: 61.29 kg

DRUGS (2)
  1. HUMIRA [Suspect]
     Indication: ANKYLOSING SPONDYLITIS
     Route: 058
     Dates: start: 201210, end: 201310
  2. HUMIRA [Suspect]
     Indication: CROHN^S DISEASE
     Dosage: FOR CROHN^S ONLY
     Route: 058
     Dates: start: 201310, end: 201311

REACTIONS (1)
  - Crohn^s disease [Unknown]
